FAERS Safety Report 8862474 (Version 1)
Quarter: 2012Q4

REPORT INFORMATION
  Report Type: 
  Country: US (occurrence: US)
  Receive Date: 20121026
  Receipt Date: 20121026
  Transmission Date: 20130627
  Serious: No
  Sender: FDA-Public Use
  Company Number: US-ALLERGAN-1202663US

PATIENT
  Age: 56 Year
  Sex: Female

DRUGS (2)
  1. ALPHAGAN [Suspect]
     Indication: INCREASED INTRAOCULAR PRESSURE
     Dosage: 1 Gtt, bid
     Route: 047
     Dates: start: 20120221, end: 20120225
  2. LOTEMAX [Concomitant]
     Indication: IRITIS
     Dosage: UNK
     Route: 047

REACTIONS (2)
  - Eye pain [Recovering/Resolving]
  - Ocular hyperaemia [Recovered/Resolved]
